FAERS Safety Report 24069379 (Version 1)
Quarter: 2024Q3

REPORT INFORMATION
  Report Type: Spontaneous
  Country: US (occurrence: US)
  Receive Date: 20240710
  Receipt Date: 20240710
  Transmission Date: 20241016
  Serious: No
  Sender: LUPIN
  Company Number: US-LUPIN PHARMACEUTICALS INC.-2024-06185

PATIENT
  Age: 21 Year
  Sex: Male

DRUGS (2)
  1. BUPROPION HYDROCHLORIDE [Suspect]
     Active Substance: BUPROPION HYDROCHLORIDE
     Indication: Anxiety
     Dosage: UNK
     Route: 065
  2. BUPROPION HYDROCHLORIDE [Suspect]
     Active Substance: BUPROPION HYDROCHLORIDE
     Indication: Depression

REACTIONS (21)
  - Insomnia [Recovered/Resolved]
  - Heart rate increased [Recovered/Resolved]
  - Tachyphrenia [Recovered/Resolved]
  - Brain fog [Recovered/Resolved]
  - Pruritus [Recovered/Resolved]
  - Libido increased [Recovered/Resolved]
  - Affective disorder [Recovered/Resolved]
  - Chest pain [Recovered/Resolved]
  - Chest discomfort [Recovered/Resolved]
  - Anxiety [Recovered/Resolved]
  - Depression [Recovered/Resolved]
  - Agitation [Recovered/Resolved]
  - Panic attack [Recovered/Resolved]
  - Apathy [Recovered/Resolved]
  - Loss of personal independence in daily activities [Recovered/Resolved]
  - Disturbance in attention [Recovered/Resolved]
  - Amnesia [Recovered/Resolved]
  - Acute stress disorder [Recovered/Resolved]
  - Strabismus [Recovered/Resolved]
  - Condition aggravated [Recovered/Resolved]
  - Dyspnoea [Recovered/Resolved]
